FAERS Safety Report 21361380 (Version 2)
Quarter: 2022Q3

REPORT INFORMATION
  Report Type: Report from Study
  Country: US (occurrence: US)
  Receive Date: 20220921
  Receipt Date: 20220930
  Transmission Date: 20221027
  Serious: No
  Sender: FDA-Public Use
  Company Number: US-ABBVIE-4127930

PATIENT
  Sex: Female

DRUGS (4)
  1. HUMIRA [Suspect]
     Active Substance: ADALIMUMAB
     Indication: Rheumatoid arthritis
     Route: 058
  2. Pfizer/BioNTech Covid Vaccine [Concomitant]
     Indication: COVID-19 immunisation
     Dosage: 1ST DOSE?1 IN 1 ONCE
     Route: 030
     Dates: start: 20210402, end: 20210402
  3. Pfizer/BioNTech Covid Vaccine [Concomitant]
     Indication: COVID-19 immunisation
     Dosage: 2ND DOSE?1 IN 1 ONCE
     Route: 030
     Dates: start: 20210517, end: 20210517
  4. Pfizer/BioNTech Covid Vaccine [Concomitant]
     Indication: COVID-19 immunisation
     Dosage: 3RD BOOSTER DOSE?1 IN 1 ONCE
     Dates: start: 20211230, end: 20211230

REACTIONS (2)
  - Fatigue [Unknown]
  - Insomnia [Unknown]
